FAERS Safety Report 7629749-4 (Version None)
Quarter: 2011Q3

REPORT INFORMATION
  Report Type: 
  Country: None (occurrence: None)
  Receive Date: 20110722
  Receipt Date: 20110719
  Transmission Date: 20111222
  Serious: No
  Sender: FDA-Public Use
  Company Number: US-PFIZER INC-2011163906

PATIENT
  Sex: Female

DRUGS (1)
  1. XALATAN [Suspect]
     Indication: INTRAOCULAR PRESSURE TEST ABNORMAL
     Dosage: 1 DROP IN EACH EYE
     Route: 047
     Dates: start: 20110711, end: 20110719

REACTIONS (4)
  - OCULAR HYPERAEMIA [None]
  - EYE PRURITUS [None]
  - EYE IRRITATION [None]
  - EYE PAIN [None]
